FAERS Safety Report 18067955 (Version 1)
Quarter: 2020Q3

REPORT INFORMATION
  Report Type: Spontaneous
  Country: US (occurrence: US)
  Receive Date: 20200725
  Receipt Date: 20200725
  Transmission Date: 20201103
  Serious: Yes (Other)
  Sender: FDA-Public Use
  Company Number: US-ROCHE-2646893

PATIENT
  Age: 9 Year
  Sex: Female
  Weight: 119 kg

DRUGS (2)
  1. XOLAIR [Suspect]
     Active Substance: OMALIZUMAB
     Indication: ASTHMA
     Dosage: BENEATH THE SKIN, USUALLY VIA INJECTION
     Route: 058
     Dates: start: 20200504, end: 20200706
  2. XOLAIR [Suspect]
     Active Substance: OMALIZUMAB
     Route: 058
     Dates: start: 20200706

REACTIONS (2)
  - Urticaria [Unknown]
  - Local reaction [Recovered/Resolved]

NARRATIVE: CASE EVENT DATE: 20200706
